FAERS Safety Report 23212963 (Version 1)
Quarter: 2023Q4

REPORT INFORMATION
  Report Type: Spontaneous
  Country: CN (occurrence: CN)
  Receive Date: 20231121
  Receipt Date: 20231121
  Transmission Date: 20240110
  Serious: Yes (Hospitalization, Other)
  Sender: FDA-Public Use
  Company Number: CN-009507513-2311CHN006510

PATIENT
  Age: 71 Year
  Sex: Male
  Weight: 54 kg

DRUGS (1)
  1. KEYTRUDA [Suspect]
     Active Substance: PEMBROLIZUMAB
     Indication: Lung neoplasm malignant
     Dosage: 200 MG, Q28D
     Route: 042
     Dates: start: 20221212, end: 20230822

REACTIONS (6)
  - Chest pain [Unknown]
  - Back pain [Unknown]
  - Intellectual disability [Unknown]
  - Somnolence [Recovering/Resolving]
  - Lethargy [Unknown]
  - Inappropriate schedule of product administration [Unknown]

NARRATIVE: CASE EVENT DATE: 20231010
